FAERS Safety Report 9718790 (Version 1)
Quarter: 2013Q4

REPORT INFORMATION
  Report Type: Spontaneous
  Country: US (occurrence: None)
  Receive Date: 20131125
  Receipt Date: 20131125
  Transmission Date: 20140711
  Serious: Yes (Hospitalization)
  Sender: FDA-Public Use
  Company Number: FK201305054

PATIENT
  Age: 59 Year
  Sex: Female

DRUGS (2)
  1. CARBOPLATIN (MANUFACTURER UNKNOWN) (CARBOPLATIN) (CARBOPLATIN) [Suspect]
     Indication: PAPILLARY SEROUS ENDOMETRIAL CARCINOMA
  2. DOCETAXEL (MANUFACTURER UNKNOWN) (DOCETAXEL) (DOCETAXEL) [Suspect]
     Indication: PAPILLARY SEROUS ENDOMETRIAL CARCINOMA

REACTIONS (4)
  - Tumour lysis syndrome [None]
  - Infection [None]
  - Skin disorder [None]
  - Pulmonary embolism [None]
